FAERS Safety Report 17527265 (Version 1)
Quarter: 2020Q1

REPORT INFORMATION
  Report Type: Spontaneous
  Country: US (occurrence: US)
  Receive Date: 20200303
  Receipt Date: 20200303
  Transmission Date: 20200409
  Serious: No
  Sender: FDA-Public Use
  Company Number: None

PATIENT
  Sex: Male

DRUGS (1)
  1. TEMOZOLOMIDE 180 MG SANDOZ [Suspect]
     Active Substance: TEMOZOLOMIDE
     Route: 048
     Dates: start: 20190608

REACTIONS (1)
  - Nausea [None]
